FAERS Safety Report 20127951 (Version 1)
Quarter: 2021Q4

REPORT INFORMATION
  Report Type: Spontaneous
  Country: US (occurrence: None)
  Receive Date: 20211129
  Receipt Date: 20211129
  Transmission Date: 20220303
  Serious: No
  Sender: FDA-Public Use
  Company Number: US-ROCHE-2857135

PATIENT
  Sex: Male

DRUGS (4)
  1. HERCEPTIN [Suspect]
     Active Substance: TRASTUZUMAB
     Indication: Product used for unknown indication
     Route: 041
  2. XELODA [Suspect]
     Active Substance: CAPECITABINE
     Indication: Product used for unknown indication
     Dosage: TWO PILLS TWICE DAILY^
     Route: 048
  3. TUKYSA [Suspect]
     Active Substance: TUCATINIB
     Indication: Breast cancer male
     Route: 065
  4. TUKYSA [Suspect]
     Active Substance: TUCATINIB
     Route: 065
     Dates: start: 20210614

REACTIONS (9)
  - Lip blister [Recovered/Resolved]
  - Blister [Recovered/Resolved]
  - Hypophagia [Recovered/Resolved]
  - Pain in extremity [Unknown]
  - Skin exfoliation [Unknown]
  - Skin discolouration [Unknown]
  - Hypotension [Unknown]
  - Erythema [Unknown]
  - Onychomadesis [Unknown]
